FAERS Safety Report 11106998 (Version 1)
Quarter: 2015Q2

REPORT INFORMATION
  Report Type: Spontaneous
  Country: US (occurrence: US)
  Receive Date: 20150512
  Receipt Date: 20150512
  Transmission Date: 20150821
  Serious: Yes (Hospitalization, Other)
  Sender: FDA-Public Use
  Company Number: US-009507513-1203USA01852

PATIENT
  Sex: Female
  Weight: 82.2 kg

DRUGS (5)
  1. FOSAMAX [Suspect]
     Active Substance: ALENDRONATE SODIUM
     Dosage: UNK, QW
     Route: 048
  2. FOSAMAX [Suspect]
     Active Substance: ALENDRONATE SODIUM
     Dosage: 10 MG, QD
     Route: 048
     Dates: start: 20000213, end: 20050918
  3. FOSAMAX [Suspect]
     Active Substance: ALENDRONATE SODIUM
     Indication: OSTEOPOROSIS
     Dosage: UNK
     Route: 048
     Dates: start: 2000, end: 2008
  4. FOSAMAX [Suspect]
     Active Substance: ALENDRONATE SODIUM
     Indication: OSTEOPOROSIS
     Route: 048
     Dates: start: 2000, end: 2008
  5. FOSAMAX PLUS D [Suspect]
     Active Substance: ALENDRONATE SODIUM\CHOLECALCIFEROL
     Indication: OSTEOPOROSIS
     Dosage: 70 MG QW
     Route: 048
     Dates: start: 20060903, end: 20081016

REACTIONS (28)
  - Fibromyalgia [Unknown]
  - Osteoarthritis [Unknown]
  - Cataract operation [Unknown]
  - Bursitis [Unknown]
  - Intramedullary rod insertion [Unknown]
  - Joint arthroplasty [Unknown]
  - Hypertension [Unknown]
  - Hypercholesterolaemia [Unknown]
  - Osteopenia [Unknown]
  - Femur fracture [Unknown]
  - Intramedullary rod insertion [Unknown]
  - Atypical femur fracture [Unknown]
  - Chondromalacia [Unknown]
  - Atrial fibrillation [Unknown]
  - Transient ischaemic attack [Unknown]
  - Knee operation [Unknown]
  - Meniscus injury [Unknown]
  - Rheumatoid arthritis [Unknown]
  - Joint effusion [Unknown]
  - Meniscus injury [Unknown]
  - Oedema peripheral [Unknown]
  - Arthropathy [Unknown]
  - Carpal tunnel decompression [Unknown]
  - Arthroscopy [Unknown]
  - Meniscus removal [Unknown]
  - Asthma [Unknown]
  - Bunion operation [Unknown]
  - Joint dislocation [Unknown]

NARRATIVE: CASE EVENT DATE: 20080725
